FAERS Safety Report 6401140-8 (Version None)
Quarter: 2009Q4

REPORT INFORMATION
  Report Type: 
  Country: None (occurrence: None)
  Receive Date: 20091015
  Receipt Date: 20091006
  Transmission Date: 20100525
  Serious: Yes (Hospitalization)
  Sender: FDA-Public Use
  Company Number: US-AMGEN-QUU367940

PATIENT
  Sex: Female

DRUGS (2)
  1. ENBREL [Suspect]
     Indication: RHEUMATOID ARTHRITIS
     Route: 058
     Dates: start: 20050120
  2. METHOTREXATE [Concomitant]
     Route: 048

REACTIONS (6)
  - BONE DENSITY ABNORMAL [None]
  - BUNION [None]
  - FALL [None]
  - FEMUR FRACTURE [None]
  - NODULE ON EXTREMITY [None]
  - TOOTH ABSCESS [None]
